FAERS Safety Report 18643352 (Version 1)
Quarter: 2020Q4

REPORT INFORMATION
  Report Type: Spontaneous
  Country: FR (occurrence: FR)
  Receive Date: 20201221
  Receipt Date: 20201221
  Transmission Date: 20210114
  Serious: Yes (Hospitalization)
  Sender: FDA-Public Use
  Company Number: FR-TEVA-2020-FR-1859566

PATIENT
  Age: 83 Year
  Sex: Female

DRUGS (8)
  1. DESLORATADINE. [Concomitant]
     Active Substance: DESLORATADINE
  2. LASILIX [Concomitant]
     Active Substance: FUROSEMIDE
  3. BISOPROLOL (HEMIFUMARATE DE) [Concomitant]
     Active Substance: BISOPROLOL FUMARATE
  4. ATORVASTATINE [Suspect]
     Active Substance: ATORVASTATIN
     Indication: PRODUCT USED FOR UNKNOWN INDICATION
     Route: 048
     Dates: end: 201606
  5. DIFFU K [Concomitant]
     Active Substance: POTASSIUM CHLORIDE
  6. COUMADINE [Suspect]
     Active Substance: WARFARIN SODIUM
     Indication: ATRIAL FIBRILLATION
     Dosage: 1MG
     Route: 048
     Dates: end: 20160613
  7. HUMALOG [Concomitant]
     Active Substance: INSULIN LISPRO
  8. LANSOPRAZOLE. [Concomitant]
     Active Substance: LANSOPRAZOLE

REACTIONS (1)
  - Haemoptysis [Recovered/Resolved]

NARRATIVE: CASE EVENT DATE: 20160613
